FAERS Safety Report 20143920 (Version 1)
Quarter: 2021Q4

REPORT INFORMATION
  Report Type: Spontaneous
  Country: JP (occurrence: JP)
  Receive Date: 20211203
  Receipt Date: 20211203
  Transmission Date: 20220303
  Serious: Yes (Death)
  Sender: FDA-Public Use
  Company Number: JP-Eisai-202109213_LEN_P_1

PATIENT
  Sex: Male

DRUGS (2)
  1. LENVIMA [Suspect]
     Active Substance: LENVATINIB
     Indication: Anaplastic thyroid cancer
     Route: 048
     Dates: start: 20210622, end: 2021
  2. LENVIMA [Suspect]
     Active Substance: LENVATINIB
     Dosage: DOSE AND FREQUENCY UNKNOWN
     Route: 048
     Dates: start: 2021, end: 20210831

REACTIONS (3)
  - Malignant neoplasm progression [Fatal]
  - Hypertension [Unknown]
  - Malaise [Unknown]

NARRATIVE: CASE EVENT DATE: 20210101
